FAERS Safety Report 20739832 (Version 1)
Quarter: 2022Q2

REPORT INFORMATION
  Report Type: Spontaneous
  Country: US (occurrence: US)
  Receive Date: 20220422
  Receipt Date: 20220422
  Transmission Date: 20220721
  Serious: No
  Sender: FDA-Public Use
  Company Number: US-Zogenix, Inc.-2022ZX000272

PATIENT
  Age: 29 Year
  Sex: Female

DRUGS (4)
  1. FINTEPLA [Suspect]
     Active Substance: FENFLURAMINE
     Indication: Severe myoclonic epilepsy of infancy
     Route: 048
     Dates: start: 202107
  2. FINTEPLA [Suspect]
     Active Substance: FENFLURAMINE
     Indication: Severe myoclonic epilepsy of infancy
     Route: 048
     Dates: start: 20220203
  3. FINTEPLA [Suspect]
     Active Substance: FENFLURAMINE
     Route: 048
     Dates: start: 20220304
  4. EPIDIOLEX [Concomitant]
     Active Substance: CANNABIDIOL
     Indication: Severe myoclonic epilepsy of infancy
     Route: 065

REACTIONS (9)
  - Reaction to sweetener [Unknown]
  - Mania [Unknown]
  - Anxiety [Unknown]
  - Muscle twitching [Unknown]
  - Anxiety [Unknown]
  - Dyskinesia [Unknown]
  - Logorrhoea [Unknown]
  - Diarrhoea [Unknown]
  - Insomnia [Unknown]
